FAERS Safety Report 6197036-X (Version None)
Quarter: 2009Q2

REPORT INFORMATION
  Report Type: 
  Country: None (occurrence: None)
  Receive Date: 20090520
  Receipt Date: 20090511
  Transmission Date: 20091009
  Serious: Yes (Hospitalization)
  Sender: FDA-Public Use
  Company Number: ES-ELI_LILLY_AND_COMPANY-ES200905002326

PATIENT
  Age: 87 Year
  Sex: Female

DRUGS (2)
  1. FORTEO [Suspect]
     Indication: OSTEOPOROSIS
     Dosage: 20 UG, UNK
     Route: 058
     Dates: start: 20080501
  2. ACTONEL [Concomitant]
     Dosage: UNK, WEEKLY (1/W)

REACTIONS (9)
  - ABDOMINAL PAIN [None]
  - CHOLELITHIASIS [None]
  - DYSPNOEA [None]
  - FATIGUE [None]
  - KIDNEY INFECTION [None]
  - LUNG ABSCESS [None]
  - NAUSEA [None]
  - PYREXIA [None]
  - RENAL CYST [None]
